FAERS Safety Report 8037485-8 (Version None)
Quarter: 2012Q1

REPORT INFORMATION
  Report Type: 
  Country: None (occurrence: None)
  Receive Date: 20120111
  Receipt Date: 20120106
  Transmission Date: 20120608
  Serious: Yes (Hospitalization)
  Sender: FDA-Public Use
  Company Number: FR-PFIZER INC-2012004044

PATIENT
  Age: 69 Year
  Sex: Female

DRUGS (5)
  1. VALIUM [Suspect]
     Dosage: 2 DF, SINGLE
  2. TRAMADOL HYDROCHLORIDE AND ACETAMINOPHEN [Suspect]
     Dosage: 4 DF, SINGLE
     Route: 048
  3. EQUANIL [Suspect]
     Dosage: 500 MG, SINGLE
     Route: 048
  4. TRIMEPRAZINE TARTRATE [Suspect]
     Dosage: 48 GTT, SINGLE
     Route: 048
  5. EFFEXOR XR [Suspect]
     Dosage: 2 DF, SINGLE
     Route: 048

REACTIONS (5)
  - SEPTIC SHOCK [None]
  - PANCREATITIS [None]
  - ALTERED STATE OF CONSCIOUSNESS [None]
  - RENAL FAILURE ACUTE [None]
  - RESPIRATORY DEPRESSION [None]
